FAERS Safety Report 6961446-0 (Version None)
Quarter: 2010Q3

REPORT INFORMATION
  Report Type: 
  Country: None (occurrence: None)
  Receive Date: 20100901
  Receipt Date: 20100827
  Transmission Date: 20110219
  Serious: Yes (Other)
  Sender: FDA-Public Use
  Company Number: US-PFIZER INC-2010076445

PATIENT
  Sex: Female
  Weight: 86.2 kg

DRUGS (18)
  1. CHANTIX [Suspect]
     Indication: SMOKING CESSATION THERAPY
     Dosage: FREQUENCY: 2X/DAY,
     Route: 048
     Dates: start: 20090601, end: 20090101
  2. CHANTIX [Interacting]
     Dosage: 0.5 MG, 1X/DAY
     Route: 048
     Dates: start: 20100826
  3. ZOLOFT [Interacting]
     Indication: DEPRESSION
     Dosage: UNK
  4. ZOLOFT [Interacting]
     Indication: ATTENTION DEFICIT/HYPERACTIVITY DISORDER
  5. VISTARIL [Interacting]
     Indication: ANXIETY
     Dosage: UNK
  6. BUSPAR [Interacting]
     Indication: ANXIETY
     Dosage: UNK
  7. NICOTROL [Concomitant]
     Indication: SMOKING CESSATION THERAPY
     Route: 048
     Dates: start: 20090501, end: 20090101
  8. ASTHALIN [Concomitant]
     Indication: HYPERSENSITIVITY
     Dosage: UNK
  9. RELPAX [Concomitant]
     Indication: MIGRAINE
     Dosage: UNK
  10. QUININE [Concomitant]
     Indication: MUSCLE SPASMS
     Dosage: UNK
  11. REQUIP [Concomitant]
     Indication: MUSCLE SPASMS
     Dosage: UNK
  12. NEXIUM [Concomitant]
     Indication: ABDOMINAL DISCOMFORT
     Dosage: UNK
  13. REGLAN [Concomitant]
     Indication: ABDOMINAL DISCOMFORT
     Dosage: UNK
  14. FLEXERIL [Concomitant]
     Indication: MUSCLE RELAXANT THERAPY
     Dosage: UNK
  15. ROBAXIN [Concomitant]
     Indication: MUSCLE RELAXANT THERAPY
     Dosage: UNK
  16. TRAZODONE [Concomitant]
     Indication: SLEEP DISORDER
     Dosage: UNK
  17. NEURONTIN [Concomitant]
     Indication: NEURALGIA
     Dosage: UNK
  18. OXYCODONE [Concomitant]
     Indication: BACK PAIN
     Dosage: UNK

REACTIONS (3)
  - AGITATION [None]
  - DRUG INTERACTION [None]
  - TOBACCO WITHDRAWAL SYMPTOMS [None]
